FAERS Safety Report 7561450-8 (Version None)
Quarter: 2011Q2

REPORT INFORMATION
  Report Type: 
  Country: None (occurrence: None)
  Receive Date: 20110621
  Receipt Date: 20100715
  Transmission Date: 20111010
  Serious: No
  Sender: FDA-Public Use
  Company Number: US-ASTRAZENECA-2010SE25994

PATIENT
  Age: 63 Year
  Sex: Female

DRUGS (1)
  1. PULMICORT FLEXHALER [Suspect]
     Dosage: 180 MCG, 2 INHALATIONS DAILY
     Route: 055
     Dates: start: 20090101

REACTIONS (2)
  - MALAISE [None]
  - DRUG INEFFECTIVE [None]
